FAERS Safety Report 16169317 (Version 1)
Quarter: 2019Q2

REPORT INFORMATION
  Report Type: Spontaneous
  Country: US (occurrence: US)
  Receive Date: 20190405
  Receipt Date: 20190405
  Transmission Date: 20190711
  Serious: Yes (Hospitalization)
  Sender: FDA-Public Use
  Company Number: None

PATIENT
  Age: 57 Year

DRUGS (1)
  1. COSENTYX [Suspect]
     Active Substance: SECUKINUMAB
     Indication: PSORIASIS

REACTIONS (6)
  - Peripheral swelling [None]
  - Psoriasis [None]
  - Psoriatic arthropathy [None]
  - Ankle operation [None]
  - Therapy cessation [None]
  - Pain in extremity [None]

NARRATIVE: CASE EVENT DATE: 20190220
